FAERS Safety Report 8439172-0 (Version None)
Quarter: 2012Q2

REPORT INFORMATION
  Report Type: 
  Country: None (occurrence: None)
  Receive Date: 20120615
  Receipt Date: 20120607
  Transmission Date: 20120825
  Serious: Yes (Life-Threatening, Hospitalization, Other)
  Sender: FDA-Public Use
  Company Number: PHEH2012US010787

PATIENT
  Sex: Female
  Weight: 54.422 kg

DRUGS (1)
  1. GILENYA [Suspect]
     Indication: MULTIPLE SCLEROSIS
     Dosage: 0.5 MG, QD
     Route: 048
     Dates: start: 20120523, end: 20120524

REACTIONS (16)
  - PALPITATIONS [None]
  - ALANINE AMINOTRANSFERASE INCREASED [None]
  - HYPOTENSION [None]
  - ATRIOVENTRICULAR DISSOCIATION [None]
  - NODAL RHYTHM [None]
  - HEADACHE [None]
  - DIZZINESS [None]
  - CHEST PAIN [None]
  - DYSPNOEA [None]
  - WHITE BLOOD CELL COUNT DECREASED [None]
  - CHEST DISCOMFORT [None]
  - MALAISE [None]
  - SINUS BRADYCARDIA [None]
  - ASTHENIA [None]
  - FEELING ABNORMAL [None]
  - ASPARTATE AMINOTRANSFERASE INCREASED [None]
